FAERS Safety Report 4904469-5 (Version None)
Quarter: 2006Q1

REPORT INFORMATION
  Report Type: 
  Country: None (occurrence: None)
  Receive Date: 20060208
  Receipt Date: 20050908
  Transmission Date: 20060701
  Serious: No
  Sender: FDA-Public Use
  Company Number: US-GLAXOSMITHKLINE-A0573504A

PATIENT
  Age: 51 Year
  Sex: Female

DRUGS (2)
  1. PAXIL [Suspect]
     Indication: DEPRESSION
     Dosage: 20MG SEE DOSAGE TEXT
     Route: 048
     Dates: start: 20050201
  2. KLONOPIN [Concomitant]

REACTIONS (3)
  - CONSTIPATION [None]
  - INFREQUENT BOWEL MOVEMENTS [None]
  - WEIGHT INCREASED [None]
